FAERS Safety Report 16883020 (Version 1)
Quarter: 2019Q4

REPORT INFORMATION
  Report Type: Report from Study
  Country: None (occurrence: AR)
  Receive Date: 20191004
  Receipt Date: 20191004
  Transmission Date: 20200122
  Serious: Yes (Other)
  Sender: FDA-Public Use
  Company Number: AR-ABBVIE-19K-007-2949227-00

PATIENT
  Age: 31 Year
  Sex: Female

DRUGS (1)
  1. HUMIRA [Suspect]
     Active Substance: ADALIMUMAB
     Indication: COLITIS ULCERATIVE
     Route: 058
     Dates: start: 20130726

REACTIONS (6)
  - Vision blurred [Not Recovered/Not Resolved]
  - Hepatic function abnormal [Unknown]
  - Liver function test abnormal [Unknown]
  - Colitis ulcerative [Unknown]
  - Dyspnoea [Not Recovered/Not Resolved]
  - Anal haemorrhage [Unknown]

NARRATIVE: CASE EVENT DATE: 20130726
